FAERS Safety Report 8365854-5 (Version None)
Quarter: 2012Q2

REPORT INFORMATION
  Report Type: 
  Country: None (occurrence: None)
  Receive Date: 20120515
  Receipt Date: 20120503
  Transmission Date: 20120825
  Serious: Yes (Hospitalization)
  Sender: FDA-Public Use
  Company Number: 1278322

PATIENT
  Age: 19 Year
  Sex: Female
  Weight: 30.391 kg

DRUGS (1)
  1. MIDAZOLAM [Suspect]
     Indication: SEDATION
     Dosage: 5 MG MILLIGRAM(S), INTRAVENOUS
     Route: 042
     Dates: start: 20120417, end: 20120417

REACTIONS (4)
  - REFUSAL OF TREATMENT BY PATIENT [None]
  - ANXIETY [None]
  - EMOTIONAL DISORDER [None]
  - TEARFULNESS [None]
